FAERS Safety Report 12591756 (Version 1)
Quarter: 2016Q3

REPORT INFORMATION
  Report Type: Spontaneous
  Country: US (occurrence: US)
  Receive Date: 20160726
  Receipt Date: 20160726
  Transmission Date: 20161109
  Serious: No
  Sender: FDA-Public Use
  Company Number: US-UNITED THERAPEUTICS-UNT-2016-001341

PATIENT
  Age: 71 Year
  Sex: Female
  Weight: 58.96 kg

DRUGS (4)
  1. VENTAVIS [Concomitant]
     Active Substance: ILOPROST
     Indication: PRODUCT USED FOR UNKNOWN INDICATION
  2. REMODULIN [Suspect]
     Active Substance: TREPROSTINIL
     Indication: PULMONARY HYPERTENSION
     Dosage: 0.002 ?G/KG, CONTINUING
     Route: 058
     Dates: start: 20160105
  3. REMODULIN [Suspect]
     Active Substance: TREPROSTINIL
     Dosage: 0.007 ?G/KG, CONTINUING
     Route: 058
  4. ADEMPAS [Suspect]
     Active Substance: RIOCIGUAT
     Indication: PRODUCT USED FOR UNKNOWN INDICATION
     Route: 065

REACTIONS (15)
  - Arthralgia [Unknown]
  - Drug dose omission [Unknown]
  - Musculoskeletal pain [Unknown]
  - Infusion site pain [Unknown]
  - Decreased appetite [Unknown]
  - Localised oedema [Unknown]
  - Neck pain [Unknown]
  - Nausea [Not Recovered/Not Resolved]
  - Chest discomfort [Unknown]
  - Back pain [Unknown]
  - Hypotension [Unknown]
  - Anxiety [Not Recovered/Not Resolved]
  - Oedema peripheral [Unknown]
  - Device dislocation [Unknown]
  - Pain [Unknown]

NARRATIVE: CASE EVENT DATE: 201601
